FAERS Safety Report 5283999-3 (Version None)
Quarter: 2007Q2

REPORT INFORMATION
  Report Type: 
  Country: None (occurrence: None)
  Receive Date: 20070402
  Receipt Date: 20070321
  Transmission Date: 20071010
  Serious: Yes (Death)
  Sender: FDA-Public Use
  Company Number: PK-PFIZER INC-2007019001

PATIENT
  Age: 25 Year
  Sex: Male
  Weight: 70 kg

DRUGS (3)
  1. LINCOCIN [Suspect]
     Indication: OTITIS MEDIA CHRONIC
     Route: 030
     Dates: start: 20061214, end: 20061221
  2. ERYTHROMYCIN [Concomitant]
     Route: 048
     Dates: start: 20061214, end: 20061221
  3. CLEMASTINE FUMARATE [Concomitant]
     Route: 048
     Dates: start: 20061214, end: 20061221

REACTIONS (1)
  - STEVENS-JOHNSON SYNDROME [None]
